FAERS Safety Report 5318545-9 (Version None)
Quarter: 2007Q2

REPORT INFORMATION
  Report Type: 
  Country: None (occurrence: None)
  Receive Date: 20070501
  Receipt Date: 20070416
  Transmission Date: 20071010
  Serious: Yes (Other)
  Sender: FDA-Public Use
  Company Number: 2007SP008114

PATIENT
  Age: 32 Year
  Sex: Female

DRUGS (3)
  1. CLARITIN-D 24 HOUR [Suspect]
     Indication: LACRIMATION INCREASED
     Dosage: ; ONCE; PO
     Route: 048
     Dates: start: 20070414
  2. CLARITIN-D 24 HOUR [Suspect]
     Indication: NASAL CONGESTION
     Dosage: ; ONCE; PO
     Route: 048
     Dates: start: 20070414
  3. CLARITIN-D 24 HOUR [Suspect]
     Indication: SNEEZING
     Dosage: ; ONCE; PO
     Route: 048
     Dates: start: 20070414

REACTIONS (1)
  - ASTHMA [None]
